FAERS Safety Report 5744468-7 (Version None)
Quarter: 2008Q2

REPORT INFORMATION
  Report Type: 
  Country: None (occurrence: None)
  Receive Date: 20080516
  Receipt Date: 20080429
  Transmission Date: 20081010
  Serious: Yes (Death)
  Sender: FDA-Public Use
  Company Number: 2008AL002881

PATIENT
  Age: 78 Year
  Sex: Male

DRUGS (6)
  1. DIGOXIN [Suspect]
     Indication: ARRHYTHMIA
     Dosage: 0.125 MG TABLET, QD, ORAL
     Route: 048
     Dates: start: 20080301, end: 20080427
  2. DILTIAZEM [Concomitant]
  3. EFFEXOR [Concomitant]
  4. MEGESTROL ACETATE [Concomitant]
  5. BACTRIM [Concomitant]
  6. CARBIDOPA AND LEVODOPA [Concomitant]

REACTIONS (4)
  - HYPOVENTILATION [None]
  - LOSS OF CONSCIOUSNESS [None]
  - RESPIRATORY ARREST [None]
  - SKIN DISCOLOURATION [None]
